FAERS Safety Report 25435469 (Version 2)
Quarter: 2025Q2

REPORT INFORMATION
  Report Type: Spontaneous
  Country: US (occurrence: US)
  Receive Date: 20250613
  Receipt Date: 20250618
  Transmission Date: 20250717
  Serious: Yes (Other)
  Sender: SPRINGWORKS THERAPEUTIC
  Company Number: US-SPRINGWORKS THERAPEUTICS-SW-002889

PATIENT
  Age: 29 Year
  Sex: Male

DRUGS (1)
  1. GOMEKLI [Suspect]
     Active Substance: MIRDAMETINIB
     Indication: Neurofibromatosis
     Dosage: 4 MILLIGRAM, BID, 3 WKS ON/ 1 WK OFF
     Route: 048
     Dates: start: 20250411, end: 20250612

REACTIONS (3)
  - Blindness transient [Recovered/Resolved]
  - Vision blurred [Unknown]
  - Intentional dose omission [Unknown]

NARRATIVE: CASE EVENT DATE: 20250501
